FAERS Safety Report 6517529-2 (Version None)
Quarter: 2009Q4

REPORT INFORMATION
  Report Type: 
  Country: None (occurrence: None)
  Receive Date: 20091224
  Receipt Date: 20091215
  Transmission Date: 20100525
  Serious: Yes (Other)
  Sender: FDA-Public Use
  Company Number: US-ASTRAZENECA-2009UW21204

PATIENT
  Age: 36 Year
  Sex: Male
  Weight: 136.1 kg

DRUGS (5)
  1. SEROQUEL [Suspect]
     Indication: SCHIZOPHRENIA, PARANOID TYPE
     Route: 048
     Dates: start: 20050101
  2. SEROQUEL [Suspect]
     Indication: BIPOLAR DISORDER
     Route: 048
     Dates: start: 20050101
  3. ZYPREXA [Concomitant]
     Dates: start: 20070101, end: 20080101
  4. HALDOL [Concomitant]
     Dates: start: 20050101, end: 20050101
  5. TRILAFON [Concomitant]

REACTIONS (5)
  - BLOOD CHOLESTEROL INCREASED [None]
  - HYPERLIPIDAEMIA [None]
  - KNEE OPERATION [None]
  - OBESITY [None]
  - TYPE 2 DIABETES MELLITUS [None]
